FAERS Safety Report 6831060-6 (Version None)
Quarter: 2010Q3

REPORT INFORMATION
  Report Type: 
  Country: None (occurrence: None)
  Receive Date: 20100707
  Receipt Date: 20100629
  Transmission Date: 20110219
  Serious: Yes (Hospitalization)
  Sender: FDA-Public Use
  Company Number: ABX233-10-0321

PATIENT
  Age: 22 Year
  Sex: Female
  Weight: 206 kg

DRUGS (5)
  1. ABRAXANE [Suspect]
     Indication: NEOPLASM MALIGNANT
  2. VIDAZA [Suspect]
     Indication: NEOPLASM MALIGNANT
  3. DILAUDID [Concomitant]
  4. FENTANYL-100 [Concomitant]
  5. GRANISETRON (GRANISETRON) [Concomitant]

REACTIONS (9)
  - ARTHRALGIA [None]
  - DRUG INEFFECTIVE [None]
  - HAEMOGLOBIN DECREASED [None]
  - MUSCULOSKELETAL PAIN [None]
  - NAUSEA [None]
  - PNEUMOTHORAX [None]
  - TACHYCARDIA [None]
  - VOMITING [None]
  - WHITE BLOOD CELL COUNT DECREASED [None]
